FAERS Safety Report 25738739 (Version 2)
Quarter: 2025Q4

REPORT INFORMATION
  Report Type: Spontaneous
  Country: US (occurrence: US)
  Receive Date: 20250829
  Receipt Date: 20251008
  Transmission Date: 20260118
  Serious: Yes (Hospitalization, Other)
  Sender: JOHNSON AND JOHNSON
  Company Number: US-JNJFOC-20250833576

PATIENT
  Age: 36 Year

DRUGS (2)
  1. INVEGA HAFYERA [Suspect]
     Active Substance: PALIPERIDONE PALMITATE
     Indication: Schizoaffective disorder
     Dosage: DATE OF LAST APPLICATION : 23-JUL-2025
     Route: 030
     Dates: start: 202404
  2. INVEGA HAFYERA [Suspect]
     Active Substance: PALIPERIDONE PALMITATE
     Indication: Bipolar disorder

REACTIONS (6)
  - Tardive dyskinesia [Not Recovered/Not Resolved]
  - Tremor [Unknown]
  - Salivary hypersecretion [Unknown]
  - Feeding disorder [Unknown]
  - Depressed mood [Unknown]
  - Anxiety [Unknown]
